FAERS Safety Report 9341229 (Version 2)
Quarter: 2013Q3

REPORT INFORMATION
  Report Type: Spontaneous
  Country: IT (occurrence: IT)
  Receive Date: 20130611
  Receipt Date: 20130723
  Transmission Date: 20140515
  Serious: Yes (Other)
  Sender: FDA-Public Use
  Company Number: IT-MERCK-1306ITA003746

PATIENT
  Age: 62 Year
  Sex: Female
  Weight: 68 kg

DRUGS (6)
  1. VICTRELIS [Suspect]
     Indication: HEPATIC CIRRHOSIS
     Dosage: 2400 MG DAILY
     Route: 048
     Dates: start: 20130513
  2. COPEGUS [Suspect]
     Indication: HEPATIC CIRRHOSIS
     Dosage: 1000 MG DAILY
     Route: 048
     Dates: start: 20130411, end: 20130527
  3. COPEGUS [Suspect]
     Dosage: 800 MG DAILY
     Route: 048
     Dates: start: 2013
  4. PEGINTRON [Concomitant]
     Indication: HEPATIC CIRRHOSIS
     Dosage: 100 MCG, 1 DOSE UNIT
     Route: 058
  5. PEGINTRON [Concomitant]
     Dosage: 80 MCG
     Route: 058
     Dates: start: 2013
  6. BLOPRESID [Concomitant]
     Indication: HYPERTENSION
     Dosage: UNK
     Route: 048

REACTIONS (4)
  - Normochromic normocytic anaemia [Unknown]
  - Abdominal pain upper [Unknown]
  - Asthenia [Unknown]
  - Nausea [Unknown]
